FAERS Safety Report 12931416 (Version 2)
Quarter: 2016Q4

REPORT INFORMATION
  Report Type: Spontaneous
  Country: FR (occurrence: FR)
  Receive Date: 20161110
  Receipt Date: 20161208
  Transmission Date: 20170207
  Serious: Yes (Other)
  Sender: FDA-Public Use
  Company Number: FR-JNJFOC-20161026267

PATIENT

DRUGS (2)
  1. TRABECTEDIN [Suspect]
     Active Substance: TRABECTEDIN
     Indication: DESMOPLASTIC SMALL ROUND CELL TUMOUR
     Dosage: 24 HOURS CONTINUOUS INTRAVENOUS INFUSION
     Route: 042
  2. TRABECTEDIN [Suspect]
     Active Substance: TRABECTEDIN
     Indication: DESMOPLASTIC SMALL ROUND CELL TUMOUR
     Dosage: 24 HOURS CONTINUOUS INTRAVENOUS INFUSION
     Route: 042
     Dates: start: 200711, end: 201312

REACTIONS (4)
  - Tumour haemorrhage [Unknown]
  - Thrombocytopenia [Unknown]
  - Febrile neutropenia [Unknown]
  - Anaemia [Unknown]
